FAERS Safety Report 12310823 (Version 4)
Quarter: 2016Q2

REPORT INFORMATION
  Report Type: Spontaneous
  Country: FR (occurrence: FR)
  Receive Date: 20160427
  Receipt Date: 20160617
  Transmission Date: 20160815
  Serious: Yes (Other)
  Sender: FDA-Public Use
  Company Number: FR-TEVA-643653ISR

PATIENT
  Age: 34 Year
  Sex: Female

DRUGS (3)
  1. MINIDRIL [Concomitant]
     Active Substance: ETHINYL ESTRADIOL\LEVONORGESTREL
     Indication: IN VITRO FERTILISATION
  2. COPAXONE [Suspect]
     Active Substance: GLATIRAMER ACETATE
     Dates: start: 20160307
  3. FOLIC ACID. [Concomitant]
     Active Substance: FOLIC ACID
     Indication: IN VITRO FERTILISATION

REACTIONS (8)
  - Injection site pain [Not Recovered/Not Resolved]
  - Injection site erythema [Unknown]
  - Injection site pain [Unknown]
  - Injection site induration [Recovered/Resolved]
  - Weight increased [Not Recovered/Not Resolved]
  - Injection site haematoma [Recovered/Resolved]
  - Injection site swelling [Unknown]
  - Lipoedema [Not Recovered/Not Resolved]

NARRATIVE: CASE EVENT DATE: 20160307
